FAERS Safety Report 8791077 (Version 2)
Quarter: 2012Q4

REPORT INFORMATION
  Report Type: 
  Country: US (occurrence: None)
  Receive Date: 20120910
  Receipt Date: 20121010
  Transmission Date: 20130627
  Serious: Yes (Disabling, Other)
  Sender: FDA-Public Use
  Company Number: ACO_31773_2012

PATIENT
  Age: 61 Year
  Sex: Female
  Weight: 105.2 kg

DRUGS (14)
  1. AMPYRA [Suspect]
     Indication: MULTIPLE SCLEROSIS
     Dates: start: 20120123, end: 2012
  2. COPAXONE [Suspect]
     Indication: MULTIPLE SCLEROSIS
     Route: 058
     Dates: end: 20120811
  3. SYNTHROID (LEVOTHYROXINE SODIUM) [Concomitant]
  4. NALTREXONE (NALTREXONE) [Concomitant]
  5. DITROPAN (OXYBUTYNIN HYDROCHLORIDE) [Concomitant]
  6. NITROFURANT MACRO (NITROFURANTOIN) [Concomitant]
  7. COUMADIN (WARFARIN SODIUM) [Concomitant]
  8. COLACE (DOCUSATE SODIUM) [Concomitant]
  9. VITAMIN D (ERGOCALCIFEROL) [Concomitant]
  10. VITAMIN B12 (CYANOCOBALAMIN) [Concomitant]
  11. VITAMIN C (ASCORBIC ACID) [Concomitant]
  12. VITAMIN B2 (RIBOFLAVIN) [Concomitant]
  13. OMEGA 3 6 9 (OMEGA 9 FATTY ACIDS, OMEGA-3 FATTY ACIDS, OMEGA-6 FATTY ACIDS) [Concomitant]
  14. BOTOX [Concomitant]

REACTIONS (6)
  - Abasia [None]
  - Feeling hot [None]
  - Pain in extremity [None]
  - Asthenia [None]
  - Dizziness [None]
  - Refusal of treatment by patient [None]
